FAERS Safety Report 9417616 (Version 1)
Quarter: 2013Q3

REPORT INFORMATION
  Report Type: Spontaneous
  Country: US (occurrence: None)
  Receive Date: 20130723
  Receipt Date: 20130723
  Transmission Date: 20140515
  Serious: Yes (Death)
  Sender: FDA-Public Use
  Company Number: 2013CT000061

PATIENT
  Age: 43 Year
  Sex: Female

DRUGS (1)
  1. KORLYM [Suspect]
     Indication: PRODUCT USED FOR UNKNOWN INDICATION
     Dosage: 900 MG; QD; PO
     Route: 048
     Dates: start: 20130521, end: 20130707

REACTIONS (1)
  - Death [None]
